FAERS Safety Report 24632334 (Version 1)
Quarter: 2024Q4

REPORT INFORMATION
  Report Type: Spontaneous
  Country: CN (occurrence: CN)
  Receive Date: 20241118
  Receipt Date: 20241118
  Transmission Date: 20250115
  Serious: Yes (Other)
  Sender: GALDERMA
  Company Number: CN-GALDERMA-CN2024016484

PATIENT

DRUGS (1)
  1. BENZOYL PEROXIDE [Suspect]
     Active Substance: BENZOYL PEROXIDE
     Indication: Acne
     Dosage: 1 GRAM, QD, APPLIED OVER A LARGE AREA OF THE NECK
     Route: 061
     Dates: start: 20241020, end: 20241103

REACTIONS (5)
  - Erythema [Recovering/Resolving]
  - Application site pustules [Recovering/Resolving]
  - Application site scab [Recovering/Resolving]
  - Application site rash [Recovering/Resolving]
  - Dermatitis contact [Recovering/Resolving]

NARRATIVE: CASE EVENT DATE: 20241101
